FAERS Safety Report 9228864 (Version 2)
Quarter: 2013Q4

REPORT INFORMATION
  Report Type: Spontaneous
  Country: FR (occurrence: FR)
  Receive Date: 20130412
  Receipt Date: 20131226
  Transmission Date: 20140711
  Serious: Yes (Hospitalization, Other)
  Sender: FDA-Public Use
  Company Number: FR-BRISTOL-MYERS SQUIBB COMPANY-18752204

PATIENT
  Age: 76 Year
  Sex: Female

DRUGS (1)
  1. SPRYCEL [Suspect]
     Indication: CHRONIC MYELOID LEUKAEMIA
     Dosage: FROM 27AUG12?INT OCT12?STOPPED FROM 20OCT12-8JAN13
     Dates: start: 200911

REACTIONS (5)
  - Pulmonary hypertension [Unknown]
  - Cardiac failure [Unknown]
  - Pleurisy [Unknown]
  - Bronchitis [Unknown]
  - Pericardial effusion [Unknown]
